FAERS Safety Report 8423829 (Version 2)
Quarter: 2012Q4

REPORT INFORMATION
  Report Type: 
  Country: US (occurrence: US)
  Receive Date: 20120224
  Receipt Date: 20121019
  Transmission Date: 20130627
  Serious: Yes (Other)
  Sender: FDA-Public Use
  Company Number: US-US-EMD SERONO, INC.-7113828

PATIENT
  Sex: Female

DRUGS (6)
  1. REBIF [Suspect]
     Indication: MULTIPLE SCLEROSIS
     Dates: start: 20110518, end: 201111
  2. VITAMIN B12 [Concomitant]
     Indication: MULTIPLE SCLEROSIS
  3. AROMASIN [Concomitant]
     Indication: BREAST CANCER
  4. AROMASIN [Concomitant]
     Indication: METASTASES TO BONE
  5. ALIMTA [Concomitant]
     Indication: BREAST CANCER
  6. ALIMTA [Concomitant]
     Indication: METASTASES TO BONE

REACTIONS (5)
  - Breast cancer female [Not Recovered/Not Resolved]
  - Metastases to lung [Not Recovered/Not Resolved]
  - Metastases to lymph nodes [Not Recovered/Not Resolved]
  - Metastases to stomach [Not Recovered/Not Resolved]
  - Metastases to spine [Not Recovered/Not Resolved]
